FAERS Safety Report 20512596 (Version 1)
Quarter: 2022Q1

REPORT INFORMATION
  Report Type: Spontaneous
  Country: US (occurrence: US)
  Receive Date: 20220224
  Receipt Date: 20220224
  Transmission Date: 20220424
  Serious: No
  Sender: FDA-Public Use
  Company Number: US-MYLANLABS-2022M1010202

PATIENT
  Sex: Female
  Weight: 72.12 kg

DRUGS (2)
  1. ESTRADIOL TRANSDERMAL SYSTEM [Suspect]
     Active Substance: ESTRADIOL
     Indication: Menopause
     Dosage: 0.05 MILLIGRAM, QD (ONCE-WEEKLY)
     Route: 062
     Dates: start: 20220119
  2. PROGESTERONE [Concomitant]
     Active Substance: PROGESTERONE
     Indication: Menopause
     Dosage: UNK UNK, BID
     Route: 004
     Dates: start: 20220118

REACTIONS (3)
  - Product adhesion issue [Unknown]
  - Tremor [Unknown]
  - Bone pain [Unknown]
